FAERS Safety Report 7460893-0 (Version None)
Quarter: 2011Q2

REPORT INFORMATION
  Report Type: 
  Country: None (occurrence: None)
  Receive Date: 20110505
  Receipt Date: 20110504
  Transmission Date: 20111010
  Serious: Yes (Other)
  Sender: FDA-Public Use
  Company Number: US-PFIZER INC-2011096379

PATIENT
  Sex: Male
  Weight: 81.63 kg

DRUGS (9)
  1. LYRICA [Suspect]
     Indication: NERVE INJURY
     Dosage: 75 MG, 1X/DAY
     Route: 048
     Dates: start: 20060101
  2. SYNTHROID [Concomitant]
     Indication: HYPOTHYROIDISM
     Dosage: UNK
  3. GABAPENTIN [Suspect]
     Indication: PAIN IN EXTREMITY
  4. ADVIL LIQUI-GELS [Concomitant]
     Indication: BACK PAIN
     Dosage: UNK
  5. LYRICA [Suspect]
     Indication: PAIN IN EXTREMITY
  6. LYRICA [Suspect]
     Indication: HYPOAESTHESIA
  7. GABAPENTIN [Suspect]
     Indication: NERVE INJURY
     Dosage: UNK
     Dates: start: 20060101, end: 20060101
  8. GABAPENTIN [Suspect]
     Indication: HYPOAESTHESIA
  9. ADVIL LIQUI-GELS [Concomitant]
     Indication: NECK PAIN

REACTIONS (2)
  - FALL [None]
  - MENISCUS LESION [None]
